FAERS Safety Report 9051293 (Version 1)
Quarter: 2013Q1

REPORT INFORMATION
  Report Type: Spontaneous
  Country: US (occurrence: US)
  Receive Date: 20130206
  Receipt Date: 20130206
  Transmission Date: 20140127
  Serious: No
  Sender: FDA-Public Use
  Company Number: US-009507513-1302USA000688

PATIENT
  Age: 60 Year
  Sex: Male

DRUGS (2)
  1. COSOPT [Suspect]
     Indication: INTRAOCULAR PRESSURE INCREASED
  2. FOSAMAX [Concomitant]

REACTIONS (1)
  - Eye pain [Unknown]
